FAERS Safety Report 13670701 (Version 1)
Quarter: 2017Q2

REPORT INFORMATION
  Report Type: Spontaneous
  Country: US (occurrence: US)
  Receive Date: 20170620
  Receipt Date: 20170620
  Transmission Date: 20170830
  Serious: No
  Sender: FDA-Public Use
  Company Number: US-ROCHE-1379490

PATIENT
  Sex: Male

DRUGS (3)
  1. XELODA [Suspect]
     Active Substance: CAPECITABINE
     Indication: NEOPLASM MALIGNANT
     Dosage: 2600 MG AM, QD X 14 DAYS
     Route: 048
     Dates: start: 20140214, end: 20140214
  2. XELODA [Suspect]
     Active Substance: CAPECITABINE
     Dosage: 2000 MG PM, QD X 14 DAYS
     Route: 048
     Dates: start: 20140214, end: 20140214
  3. XELODA [Suspect]
     Active Substance: CAPECITABINE
     Route: 048
     Dates: start: 20140313

REACTIONS (1)
  - Metastases to kidney [Unknown]
